FAERS Safety Report 4530645-X (Version None)
Quarter: 2004Q4

REPORT INFORMATION
  Report Type: 
  Country: None (occurrence: None)
  Receive Date: 20041217
  Receipt Date: 20041214
  Transmission Date: 20050328
  Serious: Yes (Death)
  Sender: FDA-Public Use
  Company Number: US-ABBOTT-04P-163-0283265-00

PATIENT
  Sex: Male

DRUGS (6)
  1. RITONAVIR SOFT GELATIN CAPSULES [Suspect]
     Indication: HIV INFECTION
     Route: 048
     Dates: end: 20040809
  2. STAVUDINE [Concomitant]
     Indication: HIV INFECTION
     Dates: end: 20040809
  3. VIREAD [Concomitant]
     Indication: HIV INFECTION
     Dates: end: 20040809
  4. ABACAVIR [Concomitant]
     Indication: HIV INFECTION
     Dates: end: 20040809
  5. LAMIVUDINE [Concomitant]
     Indication: HIV INFECTION
  6. TIPRANAVIR [Concomitant]
     Indication: HIV INFECTION
     Route: 048
     Dates: end: 20040809

REACTIONS (20)
  - ALANINE AMINOTRANSFERASE INCREASED [None]
  - ASCITES [None]
  - ASPARTATE AMINOTRANSFERASE INCREASED [None]
  - BLOOD IRON INCREASED [None]
  - CARDIAC FAILURE [None]
  - CARDIAC TAMPONADE [None]
  - HAEMORRHAGE [None]
  - HEPATOMEGALY [None]
  - HYPONATRAEMIA [None]
  - LYMPHOMA [None]
  - NEPHRITIS [None]
  - PANCYTOPENIA [None]
  - PERICARDIAL EFFUSION [None]
  - PERICARDITIS [None]
  - PSYCHOTIC DISORDER [None]
  - PYREXIA [None]
  - RENAL FAILURE [None]
  - RENAL FAILURE ACUTE [None]
  - THROMBOCYTOPENIA [None]
  - UPPER RESPIRATORY TRACT INFECTION [None]
